FAERS Safety Report 17516802 (Version 1)
Quarter: 2020Q1

REPORT INFORMATION
  Report Type: Spontaneous
  Country: US (occurrence: US)
  Receive Date: 20200306
  Receipt Date: 20200306
  Transmission Date: 20200409
  Serious: Yes (Other)
  Sender: FDA-Public Use
  Company Number: None

PATIENT
  Age: 47 Year
  Sex: Female
  Weight: 65.7 kg

DRUGS (5)
  1. HAIR SKIN AND NAILS [Concomitant]
  2. HCTZ [Concomitant]
     Active Substance: HYDROCHLOROTHIAZIDE
  3. FEMRING [Concomitant]
     Active Substance: ESTRADIOL ACETATE
  4. EMGALITY [Suspect]
     Active Substance: GALCANEZUMAB-GNLM
     Indication: MIGRAINE
     Dates: start: 20190920, end: 20191220
  5. TURMERIC [Concomitant]
     Active Substance: HERBALS\TURMERIC

REACTIONS (5)
  - Fluid retention [None]
  - Myalgia [None]
  - Weight increased [None]
  - Arthralgia [None]
  - Palpitations [None]

NARRATIVE: CASE EVENT DATE: 20191220
